FAERS Safety Report 5860288-7 (Version None)
Quarter: 2008Q3

REPORT INFORMATION
  Report Type: 
  Country: None (occurrence: None)
  Receive Date: 20080827
  Receipt Date: 20080825
  Transmission Date: 20090109
  Serious: Yes (Death)
  Sender: FDA-Public Use
  Company Number: US-ASTRAZENECA-2008UW17444

PATIENT
  Age: 90 Year
  Sex: Male

DRUGS (1)
  1. NEXIUM [Suspect]
     Indication: DRUG THERAPY
     Route: 048

REACTIONS (3)
  - BLADDER CANCER [None]
  - CARDIAC DISORDER [None]
  - METASTASES TO LIVER [None]
